FAERS Safety Report 6746831-4 (Version None)
Quarter: 2010Q2

REPORT INFORMATION
  Report Type: 
  Country: None (occurrence: None)
  Receive Date: 20100528
  Receipt Date: 20100216
  Transmission Date: 20101027
  Serious: No
  Sender: FDA-Public Use
  Company Number: A0844718A

PATIENT
  Age: 60 Year
  Sex: Female

DRUGS (2)
  1. VENTOLIN [Suspect]
     Indication: EMPHYSEMA
     Dosage: 2PUFF SIX TIMES PER DAY
     Route: 055
     Dates: start: 20080101
  2. LISINOPRIL [Concomitant]

REACTIONS (1)
  - COUGH [None]
